FAERS Safety Report 23770232 (Version 1)
Quarter: 2024Q2

REPORT INFORMATION
  Report Type: Spontaneous
  Country: US (occurrence: US)
  Receive Date: 20240422
  Receipt Date: 20240422
  Transmission Date: 20240716
  Serious: No
  Sender: FDA-Public Use
  Company Number: US-SA-SAC20240412000593

PATIENT
  Age: 39 Year
  Sex: Female
  Weight: 67.1 kg

DRUGS (4)
  1. DUPIXENT [Suspect]
     Active Substance: DUPILUMAB
     Indication: Dermatitis atopic
     Dosage: 300 MG, Q3W
     Route: 058
     Dates: start: 201909
  2. DUPIXENT [Suspect]
     Active Substance: DUPILUMAB
     Dosage: 300 MG, QOW
     Route: 058
  3. PHENTERMINE HYDROCHLORIDE [Concomitant]
     Active Substance: PHENTERMINE HYDROCHLORIDE
  4. BEPREVE [Concomitant]
     Active Substance: BEPOTASTINE BESILATE

REACTIONS (2)
  - Dermatitis atopic [Unknown]
  - Inappropriate schedule of product administration [Unknown]
